FAERS Safety Report 6915504-7 (Version None)
Quarter: 2010Q3

REPORT INFORMATION
  Report Type: 
  Country: None (occurrence: None)
  Receive Date: 20100804
  Receipt Date: 20100722
  Transmission Date: 20110219
  Serious: Yes (Disabling, Other)
  Sender: FDA-Public Use
  Company Number: 7012072

PATIENT
  Age: 65 Year
  Sex: Female

DRUGS (1)
  1. REBIF [Suspect]
     Indication: MULTIPLE SCLEROSIS
     Dosage: 22 MCG, 3 IN 1 WK, SUBCUTANEOUS
     Route: 058
     Dates: start: 20040401

REACTIONS (7)
  - BLINDNESS TRANSIENT [None]
  - CONTUSION [None]
  - CORNEAL ABRASION [None]
  - EYE SWELLING [None]
  - FACIAL BONES FRACTURE [None]
  - HEAD INJURY [None]
  - ROAD TRAFFIC ACCIDENT [None]
